FAERS Safety Report 15425785 (Version 1)
Quarter: 2018Q3

REPORT INFORMATION
  Report Type: Report from Study
  Country: US (occurrence: US)
  Receive Date: 20180925
  Receipt Date: 20180925
  Transmission Date: 20181010
  Serious: Yes (Hospitalization)
  Sender: FDA-Public Use
  Company Number: US-EXELIXIS-CABO-18015343

PATIENT
  Sex: Male

DRUGS (1)
  1. CABOMETYX [Suspect]
     Active Substance: CABOZANTINIB S-MALATE
     Indication: RENAL CELL CARCINOMA
     Dosage: 40 MG, QD (IN THE MORNING ON EMPTY STOMACH)
     Route: 048
     Dates: start: 20180711

REACTIONS (15)
  - Anxiety [Not Recovered/Not Resolved]
  - Blood pressure increased [Unknown]
  - Fatigue [Not Recovered/Not Resolved]
  - Insomnia [Not Recovered/Not Resolved]
  - Abdominal discomfort [Not Recovered/Not Resolved]
  - Lethargy [Not Recovered/Not Resolved]
  - Pain in extremity [Unknown]
  - Dysgeusia [Not Recovered/Not Resolved]
  - Pneumonia [Unknown]
  - Skin exfoliation [Unknown]
  - Weight increased [Not Recovered/Not Resolved]
  - Gout [Not Recovered/Not Resolved]
  - Blister [Not Recovered/Not Resolved]
  - Nausea [Not Recovered/Not Resolved]
  - Diarrhoea [Unknown]

NARRATIVE: CASE EVENT DATE: 2018
